FAERS Safety Report 7887068 (Version 2)
Quarter: 2012Q4

REPORT INFORMATION
  Report Type: 
  Country: GR (occurrence: GR)
  Receive Date: 20110406
  Receipt Date: 20120831
  Transmission Date: 20130627
  Serious: Yes (Hospitalization, Other)
  Sender: FDA-Public Use
  Company Number: PHHY2011GR26322

PATIENT
  Age: 41 Year
  Sex: Female

DRUGS (2)
  1. EXTAVIA [Suspect]
     Dates: start: 20101207
  2. ZINADOL [Concomitant]
     Dosage: UNK

REACTIONS (5)
  - Tachycardia [Unknown]
  - Blood pressure increased [Recovered/Resolved]
  - Chest discomfort [Unknown]
  - Arrhythmia [Unknown]
  - Depression [Unknown]
